FAERS Safety Report 14628795 (Version 1)
Quarter: 2018Q1

REPORT INFORMATION
  Report Type: Spontaneous
  Country: FR (occurrence: FR)
  Receive Date: 20180313
  Receipt Date: 20180313
  Transmission Date: 20180509
  Serious: Yes (Death)
  Sender: FDA-Public Use
  Company Number: FR-ROCHE-2086919

PATIENT
  Age: 68 Year
  Sex: Male
  Weight: 57 kg

DRUGS (3)
  1. CORTANCYL [Suspect]
     Active Substance: PREDNISONE
     Indication: LIVER TRANSPLANT
     Route: 048
  2. CELLCEPT [Suspect]
     Active Substance: MYCOPHENOLATE MOFETIL\MYCOPHENOLATE MOFETIL HYDROCHLORIDE
     Indication: LIVER TRANSPLANT
     Route: 048
  3. ADVAGRAF [Suspect]
     Active Substance: TACROLIMUS
     Indication: LIVER TRANSPLANT
     Route: 048

REACTIONS (3)
  - Lung disorder [Fatal]
  - Multiple organ dysfunction syndrome [Fatal]
  - Septic shock [Fatal]

NARRATIVE: CASE EVENT DATE: 20180103
